FAERS Safety Report 6803836-2 (Version None)
Quarter: 2010Q2

REPORT INFORMATION
  Report Type: 
  Country: None (occurrence: None)
  Receive Date: 20100628
  Receipt Date: 20100616
  Transmission Date: 20101027
  Serious: Yes (Other)
  Sender: FDA-Public Use
  Company Number: PHHY2010US39421

PATIENT
  Age: 36 Year
  Sex: Male

DRUGS (5)
  1. NEORAL [Suspect]
     Indication: PSORIASIS
     Dosage: 200 MG, BID
  2. EFALIZUMAB [Concomitant]
     Indication: PSORIASIS
     Dosage: 0.7 MG/KG , ONCE WEEKLY AND SUBSEQUENTLY 1 MG/KG AS PER LABEL
     Route: 058
  3. ENBREL [Concomitant]
     Indication: PSORIASIS
     Dosage: 50 MG TWICE WEEKLY
  4. HUMIRA [Concomitant]
     Indication: PSORIASIS
  5. IRON SUPPLEMENTS [Concomitant]

REACTIONS (2)
  - ARTHRITIS [None]
  - THROMBOCYTOSIS [None]
